FAERS Safety Report 9574381 (Version 1)
Quarter: 2013Q4

REPORT INFORMATION
  Report Type: Report from Study
  Country: SI (occurrence: SI)
  Receive Date: 20131001
  Receipt Date: 20131001
  Transmission Date: 20140711
  Serious: Yes (Death, Life-Threatening, Hospitalization)
  Sender: FDA-Public Use
  Company Number: SI-ROCHE-1279723

PATIENT
  Age: 37 Year
  Sex: Male

DRUGS (2)
  1. BEVACIZUMAB [Suspect]
     Indication: COLORECTAL CANCER METASTATIC
     Dosage: 25 MG/ML CONCENTRATE FOR SOLUTION FOR INFUSION(100MG/4ML)
     Route: 042
     Dates: start: 20130619
  2. BEVACIZUMAB [Suspect]
     Dosage: 25 MG/ML CONCENTRATE FOR SOLUTION FOR INFUSION(400MG/16ML)
     Route: 042

REACTIONS (2)
  - Necrotising fasciitis [Recovered/Resolved]
  - Colorectal cancer metastatic [Fatal]
